FAERS Safety Report 10668373 (Version 2)
Quarter: 2015Q1

REPORT INFORMATION
  Report Type: Spontaneous
  Country: None (occurrence: None)
  Receive Date: 20141217
  Receipt Date: 20150319
  Transmission Date: 20150720
  Serious: No
  Sender: FDA-Public Use
  Company Number: 2014CT000156

PATIENT
  Age: 45 Year
  Sex: Female
  Weight: 75.3 kg

DRUGS (1)
  1. KORLYM [Suspect]
     Active Substance: MIFEPRISTONE
     Indication: CUSHING^S SYNDROME
     Route: 048

REACTIONS (3)
  - Palpitations [None]
  - Menstruation delayed [None]
  - Intentional product use issue [None]

NARRATIVE: CASE EVENT DATE: 201408
